FAERS Safety Report 7468993-6 (Version None)
Quarter: 2011Q2

REPORT INFORMATION
  Report Type: 
  Country: None (occurrence: None)
  Receive Date: 20110510
  Receipt Date: 20110504
  Transmission Date: 20111010
  Serious: Yes (Disabling)
  Sender: FDA-Public Use
  Company Number: GB-ELI_LILLY_AND_COMPANY-GB201105001205

PATIENT
  Sex: Female

DRUGS (1)
  1. HUMULIN 70/30 [Suspect]
     Dosage: UNK

REACTIONS (1)
  - BLINDNESS [None]
